FAERS Safety Report 7361373-3 (Version None)
Quarter: 2011Q1

REPORT INFORMATION
  Report Type: 
  Country: None (occurrence: None)
  Receive Date: 20110315
  Receipt Date: 20110315
  Transmission Date: 20110831
  Serious: Yes (Other)
  Sender: FDA-Public Use
  Company Number: None

PATIENT
  Age: 76 Year
  Sex: Female
  Weight: 68.0396 kg

DRUGS (1)
  1. CEPHALEXIN [Suspect]
     Indication: ENTEROCOLITIS INFECTIOUS
     Dosage: 500 MG
     Dates: start: 20101219, end: 20101229

REACTIONS (6)
  - RASH [None]
  - DEHYDRATION [None]
  - BLOOD PRESSURE DECREASED [None]
  - ENTEROCOLITIS INFECTIOUS [None]
  - VOMITING [None]
  - LOSS OF CONSCIOUSNESS [None]
